FAERS Safety Report 17516702 (Version 1)
Quarter: 2020Q1

REPORT INFORMATION
  Report Type: Spontaneous
  Country: BR (occurrence: BR)
  Receive Date: 20200309
  Receipt Date: 20200309
  Transmission Date: 20200409
  Serious: Yes (Hospitalization, Other)
  Sender: FDA-Public Use
  Company Number: NVSC2020BR066076

PATIENT
  Weight: 125 kg

DRUGS (3)
  1. LOSARTAN. [Suspect]
     Active Substance: LOSARTAN
     Indication: HYPERTENSION
     Dosage: 1 DF, QD {10 YEARS AGO}
     Route: 048
  2. HYDROCHLOROTHIAZIDE. [Concomitant]
     Active Substance: HYDROCHLOROTHIAZIDE
     Indication: HYPERTENSION
     Dosage: 1 DF, QD {10 YEARS AGO}
     Route: 048
  3. COSENTYX [Concomitant]
     Active Substance: SECUKINUMAB
     Indication: ANKYLOSING SPONDYLITIS
     Dosage: 1 DF {BEHIND THE ARM}
     Route: 065
     Dates: start: 20190418

REACTIONS (4)
  - Ankylosing spondylitis [Unknown]
  - Hernia obstructive [Not Recovered/Not Resolved]
  - Concomitant disease aggravated [Unknown]
  - Umbilical hernia [Unknown]
